FAERS Safety Report 11630544 (Version 1)
Quarter: 2015Q4

REPORT INFORMATION
  Report Type: Spontaneous
  Country: US (occurrence: US)
  Receive Date: 20151014
  Receipt Date: 20151014
  Transmission Date: 20160304
  Serious: No
  Sender: FDA-Public Use
  Company Number: US-UNICHEM LABORATORIES LIMITED-UCM201508-000606

PATIENT
  Age: 67 Year
  Sex: Female
  Weight: 99.79 kg

DRUGS (11)
  1. HYDROCHOLOTHIAZIDE 25 MG TABLET [Suspect]
     Active Substance: HYDROCHLOROTHIAZIDE
     Indication: PERIPHERAL SWELLING
     Route: 048
  2. CELEBREX [Concomitant]
     Active Substance: CELECOXIB
  3. LETROZOLE. [Concomitant]
     Active Substance: LETROZOLE
  4. CAFFEINE. [Concomitant]
     Active Substance: CAFFEINE
  5. CLONIDINE. [Concomitant]
     Active Substance: CLONIDINE
  6. CLOPIDOGREL [Suspect]
     Active Substance: CLOPIDOGREL BISULFATE
  7. OMEPRAZOLE. [Concomitant]
     Active Substance: OMEPRAZOLE
     Route: 048
  8. LISINOPRIL. [Concomitant]
     Active Substance: LISINOPRIL
  9. FERREX [Concomitant]
  10. KLOR-CON [Concomitant]
     Active Substance: POTASSIUM CHLORIDE
  11. VITAMIN D [Concomitant]
     Active Substance: CHOLECALCIFEROL

REACTIONS (3)
  - Chromaturia [Recovering/Resolving]
  - Pain in extremity [Not Recovered/Not Resolved]
  - Wrong drug administered [Unknown]

NARRATIVE: CASE EVENT DATE: 201507
